FAERS Safety Report 5026816-9 (Version None)
Quarter: 2006Q2

REPORT INFORMATION
  Report Type: 
  Country: None (occurrence: None)
  Receive Date: 20060608
  Receipt Date: 20060605
  Transmission Date: 20061013
  Serious: Yes (Hospitalization)
  Sender: FDA-Public Use
  Company Number: 200602965

PATIENT
  Age: 85 Year
  Sex: Female

DRUGS (7)
  1. GATIFLO (GATIFLOXACIN  SESQUIHYDRATE) EYE DROPS, SOLUTION, 0.3% [Suspect]
     Indication: PREOPERATIVE CARE
     Dosage: 1GTT, QID, OPHTHALMIC
     Route: 047
     Dates: start: 20051227, end: 20060228
  2. CALONAL (PARACETAMOL) [Concomitant]
  3. PRORENAL (LIMAPROST) [Concomitant]
  4. CETRAXATE HYDROCHLORIDE (CETRAXATE HYDROCHLORIDE) [Concomitant]
  5. RIMATIL (BUCILLAMINE) [Concomitant]
  6. DORNER (BERAPROST SODIUM) [Concomitant]
  7. PREDNISOLONE [Concomitant]

REACTIONS (1)
  - HYPOGLYCAEMIA [None]
